FAERS Safety Report 5309294-1 (Version None)
Quarter: 2007Q2

REPORT INFORMATION
  Report Type: 
  Country: None (occurrence: None)
  Receive Date: 20070424
  Receipt Date: 20070424
  Transmission Date: 20071010
  Serious: Yes (Other)
  Sender: FDA-Public Use
  Company Number: None

PATIENT
  Sex: Male
  Weight: 97.5234 kg

DRUGS (1)
  1. RESTASIS [Suspect]
     Indication: BASEDOW'S DISEASE
     Dosage: .4 ML -DROP EACH EYE TWICE DAILY OPTHALMIC
     Route: 047
     Dates: start: 20070310, end: 20070402

REACTIONS (3)
  - HERPES ZOSTER [None]
  - IMMUNOSUPPRESSION [None]
  - MEDICATION ERROR [None]
